FAERS Safety Report 5859596-5 (Version None)
Quarter: 2008Q3

REPORT INFORMATION
  Report Type: 
  Country: None (occurrence: None)
  Receive Date: 20080826
  Receipt Date: 20080826
  Transmission Date: 20090109
  Serious: Yes (Other)
  Sender: FDA-Public Use
  Company Number: None

PATIENT
  Age: 60 Year
  Sex: Male
  Weight: 78.4723 kg

DRUGS (2)
  1. JANUVIA [Suspect]
     Indication: HYPERTENSION
     Dosage: TAKE ONE TABLET DAILY
     Dates: start: 20080201, end: 20080806
  2. AVELOX [Suspect]
     Indication: INFECTION
     Dosage: TAKE ONE TABLET DAILY
     Dates: start: 20080607, end: 20080701

REACTIONS (20)
  - ARTHRALGIA [None]
  - FEELING HOT [None]
  - GAIT DISTURBANCE [None]
  - GROIN PAIN [None]
  - INFECTION [None]
  - INSOMNIA [None]
  - JOINT SWELLING [None]
  - LIMB DISCOMFORT [None]
  - MUSCULAR WEAKNESS [None]
  - MYALGIA [None]
  - OEDEMA PERIPHERAL [None]
  - PAIN [None]
  - PARAESTHESIA [None]
  - PRURITUS [None]
  - RASH [None]
  - RASH ERYTHEMATOUS [None]
  - SKIN EXFOLIATION [None]
  - SKIN ULCER [None]
  - TENDON PAIN [None]
  - TENDONITIS [None]
